FAERS Safety Report 9767697 (Version 1)
Quarter: 2013Q4

REPORT INFORMATION
  Report Type: Spontaneous
  Country: US (occurrence: US)
  Receive Date: 20131217
  Receipt Date: 20131217
  Transmission Date: 20140711
  Serious: No
  Sender: FDA-Public Use
  Company Number: US-PFIZER INC-2013361496

PATIENT
  Sex: 0

DRUGS (1)
  1. ZOLOFT [Suspect]
     Dosage: UNK

REACTIONS (9)
  - Vision blurred [Unknown]
  - Dizziness [Unknown]
  - Pain [Unknown]
  - Malaise [Unknown]
  - Fatigue [Unknown]
  - Depression [Unknown]
  - Diarrhoea [Unknown]
  - Nervousness [Recovering/Resolving]
  - Poor quality sleep [Recovering/Resolving]
